FAERS Safety Report 8817637 (Version 5)
Quarter: 2013Q2

REPORT INFORMATION
  Report Type: Spontaneous
  Country: US (occurrence: US)
  Receive Date: 20121001
  Receipt Date: 20130418
  Transmission Date: 20140414
  Serious: Yes (Hospitalization, Other)
  Sender: FDA-Public Use
  Company Number: US-009507513-1209USA011032

PATIENT
  Sex: Female
  Weight: 68.93 kg

DRUGS (2)
  1. FOSAMAX [Suspect]
     Indication: OSTEOPOROSIS
     Dosage: UNK
     Route: 048
     Dates: start: 200401, end: 200711
  2. FOSAMAX [Suspect]
     Indication: OSTEOPENIA
     Dosage: UNK
     Route: 048
     Dates: start: 199911, end: 200011

REACTIONS (40)
  - Femur fracture [Unknown]
  - Intramedullary rod insertion [Unknown]
  - Biopsy bone [Unknown]
  - Transfusion [Unknown]
  - Femur fracture [Unknown]
  - Intramedullary rod insertion [Unknown]
  - Transfusion [Unknown]
  - Bacterial test positive [Unknown]
  - Anaemia postoperative [Unknown]
  - Haematoma [Unknown]
  - Hyperlipidaemia [Unknown]
  - Spinal laminectomy [Unknown]
  - Hypertonic bladder [Unknown]
  - Procedural haemorrhage [Unknown]
  - Device failure [Unknown]
  - Urinary anastomotic leak [Unknown]
  - Bladder disorder [Unknown]
  - Pain [Unknown]
  - Hiatus hernia [Unknown]
  - Sciatica [Unknown]
  - Urinary tract infection [Unknown]
  - Bladder operation [Unknown]
  - Carotid artery stenosis [Unknown]
  - Foot operation [Unknown]
  - Foot operation [Unknown]
  - Arthritis [Unknown]
  - Bone formation increased [Unknown]
  - Soft tissue mass [Unknown]
  - Adverse drug reaction [Unknown]
  - Dermatitis contact [Unknown]
  - Fall [Unknown]
  - Blood cholesterol increased [Unknown]
  - Muscular weakness [Unknown]
  - Gastritis erosive [Unknown]
  - Drug hypersensitivity [Unknown]
  - Pain in extremity [Unknown]
  - Back pain [Unknown]
  - Abdominal pain [Recovered/Resolved]
  - Gastrooesophageal reflux disease [Not Recovered/Not Resolved]
  - Arthralgia [Unknown]
